FAERS Safety Report 25338729 (Version 3)
Quarter: 2025Q3

REPORT INFORMATION
  Report Type: Report from Study
  Country: US (occurrence: US)
  Receive Date: 20250520
  Receipt Date: 20250703
  Transmission Date: 20251020
  Serious: No
  Sender: MALLINCKRODT
  Company Number: US-MALLINCKRODT-MNK202502542

PATIENT
  Age: 41 Year
  Sex: Female
  Weight: 220 kg

DRUGS (4)
  1. CORTICOTROPIN [Suspect]
     Active Substance: CORTICOTROPIN
     Indication: Systemic lupus erythematosus
     Route: 058
     Dates: start: 20250422
  2. CORTISONE [Concomitant]
     Active Substance: CORTISONE
  3. PREDNISONE [Concomitant]
     Active Substance: PREDNISONE
  4. CORTICOTROPIN [Concomitant]
     Active Substance: CORTICOTROPIN

REACTIONS (3)
  - Brain fog [Not Recovered/Not Resolved]
  - Drug withdrawal syndrome [Not Recovered/Not Resolved]
  - Malaise [Not Recovered/Not Resolved]

NARRATIVE: CASE EVENT DATE: 20250101
